FAERS Safety Report 18477652 (Version 5)
Quarter: 2023Q1

REPORT INFORMATION
  Report Type: Report from Study
  Country: AU (occurrence: AU)
  Receive Date: 20201107
  Receipt Date: 20230131
  Transmission Date: 20230418
  Serious: Yes (Life-Threatening, Hospitalization)
  Sender: FDA-Public Use
  Company Number: NVSC2020AU297188

PATIENT
  Age: 15 Year
  Sex: Female
  Weight: 80 kg

DRUGS (2)
  1. DABRAFENIB [Suspect]
     Active Substance: DABRAFENIB
     Indication: Glioma
     Dosage: 75 MG, BID
     Route: 048
     Dates: start: 20181126
  2. TRAMETINIB [Suspect]
     Active Substance: TRAMETINIB
     Indication: Glioma
     Dosage: 2 MG, QD
     Route: 048
     Dates: start: 20181126

REACTIONS (1)
  - Toxic shock syndrome [Recovered/Resolved]

NARRATIVE: CASE EVENT DATE: 20201102
